FAERS Safety Report 13346426 (Version 3)
Quarter: 2017Q2

REPORT INFORMATION
  Report Type: Spontaneous
  Country: KR (occurrence: KR)
  Receive Date: 20170317
  Receipt Date: 20170512
  Transmission Date: 20170830
  Serious: Yes (Hospitalization, Other)
  Sender: FDA-Public Use
  Company Number: KR-009507513-1703KOR006359

PATIENT
  Age: 67 Year
  Sex: Female
  Weight: 61 kg

DRUGS (42)
  1. ADRIAMYCIN [Concomitant]
     Active Substance: DOXORUBICIN HYDROCHLORIDE
     Indication: BREAST CANCER
     Dosage: 96 MG, ONCE, CYCLE 1
     Route: 042
     Dates: start: 20161226, end: 20161226
  2. ADRIAMYCIN [Concomitant]
     Active Substance: DOXORUBICIN HYDROCHLORIDE
     Dosage: 86.5 MG, ONCE, CYCLE 3
     Route: 042
     Dates: start: 20170209, end: 20170209
  3. ADRIAMYCIN [Concomitant]
     Active Substance: DOXORUBICIN HYDROCHLORIDE
     Dosage: 86.5 MG, ONCE, CYCLE 4
     Route: 042
     Dates: start: 20170302, end: 20170302
  4. ENDOXAN [Concomitant]
     Active Substance: CYCLOPHOSPHAMIDE
     Dosage: 865 MG, ONCE, CYCLE 2
     Route: 042
     Dates: start: 20170119, end: 20170119
  5. NASEA [Concomitant]
     Active Substance: RAMOSETRON HYDROCHLORIDE
     Dosage: 0.1 MG, DAILY
     Route: 048
     Dates: start: 20170120, end: 20170122
  6. SANCUSO [Concomitant]
     Active Substance: GRANISETRON
     Dosage: 34.3 MG, ONCE (80.2X66.6 MM2 PATCH)
     Route: 062
     Dates: start: 20170208, end: 20170208
  7. SANCUSO [Concomitant]
     Active Substance: GRANISETRON
     Dosage: 34.3 MG, ONCE (80.2X66.6 MM2 PATCH)
     Route: 062
     Dates: start: 20170301, end: 20170301
  8. ENDOXAN [Concomitant]
     Active Substance: CYCLOPHOSPHAMIDE
     Indication: BREAST CANCER
     Dosage: 960 MG, ONCE, CYCLE 1
     Route: 042
     Dates: start: 20161226, end: 20161226
  9. DEXAMETHASONE. [Concomitant]
     Active Substance: DEXAMETHASONE
     Dosage: 4 MG, TWO TIMES A DAY
     Route: 048
     Dates: start: 20170302, end: 20170305
  10. NASEA [Concomitant]
     Active Substance: RAMOSETRON HYDROCHLORIDE
     Dosage: 0.1 MG, DAILY
     Route: 048
     Dates: start: 20170210, end: 20170212
  11. ENTELON [Concomitant]
     Dosage: 1 TABLET (150 MG), TWICE A DAY
     Route: 048
     Dates: start: 20170119, end: 20170131
  12. CARDIOXANE [Concomitant]
     Active Substance: DEXRAZOXANE HYDROCHLORIDE
     Dosage: 1 G, ONCE
     Route: 042
     Dates: start: 20170209, end: 20170209
  13. NEUTROGIN [Concomitant]
     Active Substance: LENOGRASTIM
     Dosage: 250 MICROGRAM, DAILY
     Route: 058
     Dates: start: 20170308, end: 20170313
  14. STOGAR [Concomitant]
     Active Substance: LAFUTIDINE
     Indication: PROPHYLAXIS AGAINST GASTROINTESTINAL ULCER
     Dosage: 1 TABLET (10 MG), TWICE A DAY
     Route: 048
     Dates: start: 20161226
  15. EMEND (FOSAPREPITANT DIMEGLUMINE) [Suspect]
     Active Substance: FOSAPREPITANT DIMEGLUMINE
     Dosage: 150 MG, ONCE
     Route: 042
     Dates: start: 20170119, end: 20170119
  16. NASEA [Concomitant]
     Active Substance: RAMOSETRON HYDROCHLORIDE
     Dosage: 0.3 MG, ONCE
     Route: 042
     Dates: start: 20170302, end: 20170302
  17. NASEA [Concomitant]
     Active Substance: RAMOSETRON HYDROCHLORIDE
     Dosage: 0.1 MG, DAILY
     Route: 048
     Dates: start: 20170303, end: 20170305
  18. ENTELON [Concomitant]
     Dosage: 1 TABLET (150 MG), TWICE A DAY
     Route: 048
     Dates: start: 20170211, end: 20170220
  19. ENDOXAN [Concomitant]
     Active Substance: CYCLOPHOSPHAMIDE
     Dosage: 865 MG, ONCE, CYCLE 3
     Route: 042
     Dates: start: 20170209, end: 20170209
  20. ENDOXAN [Concomitant]
     Active Substance: CYCLOPHOSPHAMIDE
     Dosage: 865 MG, ONCE, CYCLE 4
     Route: 042
     Dates: start: 20170302, end: 20170302
  21. DEXAMETHASONE. [Concomitant]
     Active Substance: DEXAMETHASONE
     Indication: PROPHYLAXIS OF NAUSEA AND VOMITING
     Dosage: 4 MG, TWO TIMES A DAY
     Route: 048
     Dates: start: 20161226, end: 20161229
  22. NASEA [Concomitant]
     Active Substance: RAMOSETRON HYDROCHLORIDE
     Dosage: 0.3 MG, ONCE
     Route: 042
     Dates: start: 20170209, end: 20170209
  23. CARDIOXANE [Concomitant]
     Active Substance: DEXRAZOXANE HYDROCHLORIDE
     Dosage: 1 G, ONCE
     Route: 042
     Dates: start: 20170302, end: 20170302
  24. NEUTROGIN [Concomitant]
     Active Substance: LENOGRASTIM
     Dosage: 250 MICROGRAM, DAILY
     Route: 058
     Dates: start: 20170106, end: 20170107
  25. DEXAMETHASONE. [Concomitant]
     Active Substance: DEXAMETHASONE
     Dosage: 4 MG, TWO TIMES A DAY
     Route: 048
     Dates: start: 20170119, end: 20170122
  26. CARDIOXANE [Concomitant]
     Active Substance: DEXRAZOXANE HYDROCHLORIDE
     Indication: PROPHYLAXIS
     Dosage: 1 G, ONCE
     Route: 042
     Dates: start: 20161226, end: 20161226
  27. EMEND (FOSAPREPITANT DIMEGLUMINE) [Suspect]
     Active Substance: FOSAPREPITANT DIMEGLUMINE
     Dosage: 150 MG, ONCE
     Route: 042
     Dates: start: 20170209, end: 20170209
  28. EMEND (FOSAPREPITANT DIMEGLUMINE) [Suspect]
     Active Substance: FOSAPREPITANT DIMEGLUMINE
     Dosage: 150 MG, ONCE
     Route: 042
     Dates: start: 20170302, end: 20170302
  29. NASEA [Concomitant]
     Active Substance: RAMOSETRON HYDROCHLORIDE
     Indication: PROPHYLAXIS OF NAUSEA AND VOMITING
     Dosage: 0.3 MG, ONCE
     Route: 042
     Dates: start: 20161226, end: 20161226
  30. NASEA [Concomitant]
     Active Substance: RAMOSETRON HYDROCHLORIDE
     Dosage: 0.3 MG, ONCE
     Route: 042
     Dates: start: 20170119, end: 20170119
  31. SANCUSO [Concomitant]
     Active Substance: GRANISETRON
     Dosage: 34.3 MG, ONCE (80.2X66.6 MM2 PATCH)
     Route: 062
     Dates: start: 20170118, end: 20170118
  32. ENTELON [Concomitant]
     Indication: PROPHYLAXIS
     Dosage: 1 TABLET (150 MG), TWICE A DAY
     Route: 048
     Dates: start: 20161226, end: 20170102
  33. NEUTROGIN [Concomitant]
     Active Substance: LENOGRASTIM
     Dosage: 250 MICROGRAM, DAILY
     Route: 058
     Dates: start: 20170123, end: 20170130
  34. EMEND (FOSAPREPITANT DIMEGLUMINE) [Suspect]
     Active Substance: FOSAPREPITANT DIMEGLUMINE
     Indication: PROPHYLAXIS OF NAUSEA AND VOMITING
     Dosage: 150 MG, ONCE
     Route: 042
     Dates: start: 20161226, end: 20161226
  35. ADRIAMYCIN [Concomitant]
     Active Substance: DOXORUBICIN HYDROCHLORIDE
     Dosage: 86.5 MG, ONCE, CYCLE 2
     Route: 042
     Dates: start: 20170119, end: 20170119
  36. NASEA [Concomitant]
     Active Substance: RAMOSETRON HYDROCHLORIDE
     Indication: PROPHYLAXIS OF NAUSEA AND VOMITING
     Dosage: 0.1 MG, DAILY
     Route: 048
     Dates: start: 20161227, end: 20161229
  37. DEXAMETHASONE. [Concomitant]
     Active Substance: DEXAMETHASONE
     Dosage: 4 MG, TWO TIMES A DAY
     Route: 048
     Dates: start: 20170209, end: 20170212
  38. SANCUSO [Concomitant]
     Active Substance: GRANISETRON
     Indication: PROPHYLAXIS OF NAUSEA AND VOMITING
     Dosage: 34.3 MG, ONCE (80.2X66.6 MM2 PATCH)
     Route: 062
     Dates: start: 20161225, end: 20161225
  39. ENTELON [Concomitant]
     Dosage: 1 TABLET (150 MG), TWICE A DAY
     Route: 048
     Dates: start: 20170301, end: 20170312
  40. CARDIOXANE [Concomitant]
     Active Substance: DEXRAZOXANE HYDROCHLORIDE
     Dosage: 1 G, ONCE
     Route: 042
     Dates: start: 20170119, end: 20170119
  41. NEUTROGIN [Concomitant]
     Active Substance: LENOGRASTIM
     Indication: ANAEMIA PROPHYLAXIS
     Dosage: 250 MICROGRAM, ONCE
     Route: 058
     Dates: start: 20170101, end: 20170101
  42. NEUTROGIN [Concomitant]
     Active Substance: LENOGRASTIM
     Dosage: 250 MICROGRAM, DAILY
     Route: 058
     Dates: start: 20170213, end: 20170219

REACTIONS (1)
  - Neutropenia [Recovered/Resolved]

NARRATIVE: CASE EVENT DATE: 20170105
